FAERS Safety Report 18904209 (Version 1)
Quarter: 2021Q1

REPORT INFORMATION
  Report Type: Spontaneous
  Country: US (occurrence: US)
  Receive Date: 20210217
  Receipt Date: 20210217
  Transmission Date: 20210420
  Serious: No
  Sender: FDA-Public Use
  Company Number: US-SA-2021SA045263

PATIENT
  Age: 74 Year
  Sex: Female

DRUGS (1)
  1. MULTAQ [Suspect]
     Active Substance: DRONEDARONE
     Indication: ATRIAL FIBRILLATION
     Dosage: 400 MG, Q12H
     Route: 065
     Dates: start: 20200504

REACTIONS (1)
  - Lichenoid keratosis [Unknown]

NARRATIVE: CASE EVENT DATE: 20200604
